FAERS Safety Report 8508526-6 (Version None)
Quarter: 2012Q3

REPORT INFORMATION
  Report Type: 
  Country: None (occurrence: None)
  Receive Date: 20120713
  Receipt Date: 20120711
  Transmission Date: 20120928
  Serious: No
  Sender: FDA-Public Use
  Company Number: US-PFIZER INC-2012167674

PATIENT
  Sex: Female
  Weight: 64.399 kg

DRUGS (1)
  1. LIPITOR [Suspect]
     Dosage: 20 MG, DAILY
     Dates: start: 20040101, end: 20040101

REACTIONS (1)
  - DRUG INEFFECTIVE [None]
